FAERS Safety Report 5476854-7 (Version None)
Quarter: 2007Q4

REPORT INFORMATION
  Report Type: 
  Country: None (occurrence: None)
  Receive Date: 20071004
  Receipt Date: 20070925
  Transmission Date: 20080405
  Serious: Yes (Hospitalization)
  Sender: FDA-Public Use
  Company Number: US-ROCHE-521655

PATIENT
  Age: 56 Year
  Sex: Male
  Weight: 96.3 kg

DRUGS (2)
  1. PEG-INTERFERON ALFA 2A (RO 25-8310) [Suspect]
     Route: 058
     Dates: start: 20070718, end: 20070726
  2. RIBAVIRIN [Suspect]
     Dosage: FREQUENCY REPORTED AS EVERY DAY (QD).
     Route: 048
     Dates: start: 20070718, end: 20070728

REACTIONS (2)
  - AZOTAEMIA [None]
  - DEHYDRATION [None]
